FAERS Safety Report 5241436-9 (Version None)
Quarter: 2007Q1

REPORT INFORMATION
  Report Type: 
  Country: None (occurrence: None)
  Receive Date: 20070220
  Receipt Date: 20070209
  Transmission Date: 20070707
  Serious: Yes (Hospitalization)
  Sender: FDA-Public Use
  Company Number: FR-AVENTIS-200311337FR

PATIENT
  Age: 43 Year
  Sex: Female
  Weight: 60 kg

DRUGS (13)
  1. KETEK [Suspect]
     Route: 048
     Dates: start: 20030322, end: 20030322
  2. MESTINON [Concomitant]
     Route: 048
  3. IMUREL                             /00001501/ [Concomitant]
     Route: 048
  4. SOLUPRED                           /00016201/ [Concomitant]
     Route: 048
  5. DIFFU K [Concomitant]
     Route: 048
  6. OROCAL                             /00108001/ [Concomitant]
     Route: 048
  7. TOCO [Concomitant]
     Route: 048
  8. MOPRAL [Concomitant]
     Route: 048
  9. CORTICOSTEROIDS AND ANTIINFECTIVES IN COMB. [Concomitant]
     Dates: start: 20030322
  10. IMUDON [Concomitant]
     Route: 048
     Dates: start: 20030322
  11. EFFERALGAN                         /00020001/ [Concomitant]
  12. SILOMAT                            /00096702/ [Concomitant]
     Route: 048
  13. NASONEX [Concomitant]

REACTIONS (6)
  - DIPLOPIA [None]
  - DYSPHONIA [None]
  - HYPOAESTHESIA ORAL [None]
  - MUSCULAR WEAKNESS [None]
  - MYASTHENIA GRAVIS [None]
  - RESPIRATORY DISORDER [None]
